FAERS Safety Report 10417111 (Version 1)
Quarter: 2014Q3

REPORT INFORMATION
  Report Type: Spontaneous
  Country: US (occurrence: US)
  Receive Date: 20140828
  Receipt Date: 20140828
  Transmission Date: 20150326
  Serious: No
  Sender: FDA-Public Use
  Company Number: US-009507513-1408USA015016

PATIENT
  Sex: Male

DRUGS (2)
  1. TINACTIN [Suspect]
     Active Substance: TOLNAFTATE
     Indication: SKIN ODOUR ABNORMAL
     Dosage: UNK, UNKNOWN
     Route: 061
  2. TINACTIN [Suspect]
     Active Substance: TOLNAFTATE
     Indication: HYPERHIDROSIS

REACTIONS (2)
  - Off label use [Unknown]
  - Drug ineffective for unapproved indication [Unknown]
